FAERS Safety Report 8061197-8 (Version None)
Quarter: 2012Q1

REPORT INFORMATION
  Report Type: 
  Country: None (occurrence: None)
  Receive Date: 20120120
  Receipt Date: 20120116
  Transmission Date: 20120608
  Serious: Yes (Other)
  Sender: FDA-Public Use
  Company Number: GB-ASTRAZENECA-2012SE02931

PATIENT
  Age: 88 Year
  Sex: Female
  Weight: 50 kg

DRUGS (12)
  1. CLOPIDOGREL [Suspect]
     Indication: ACUTE CORONARY SYNDROME
     Route: 048
     Dates: start: 20111214
  2. NITRAZEPAM [Concomitant]
     Indication: INSOMNIA
  3. FUROSEMIDE [Concomitant]
  4. OMEPRAZOLE [Concomitant]
  5. BISOPROLOL [Concomitant]
     Indication: ACUTE CORONARY SYNDROME
  6. FLUTICASONE PROPIONATE [Concomitant]
     Indication: ASTHMA
  7. TIOPRONIN [Concomitant]
  8. SIMVASTATIN [Concomitant]
     Indication: ACUTE CORONARY SYNDROME
  9. MEROPENEM [Suspect]
     Indication: UROSEPSIS
     Route: 042
     Dates: start: 20111217
  10. FLUTICASONE PROPIONATE [Concomitant]
     Indication: CHRONIC OBSTRUCTIVE PULMONARY DISEASE
  11. NITRAZEPAM [Concomitant]
     Indication: ANXIETY
  12. PROCHLORPERAZINE [Concomitant]

REACTIONS (1)
  - DYSGEUSIA [None]
